FAERS Safety Report 16585975 (Version 12)
Quarter: 2019Q4

REPORT INFORMATION
  Report Type: Report from Study
  Country: JP (occurrence: JP)
  Receive Date: 20190717
  Receipt Date: 20191204
  Transmission Date: 20200122
  Serious: Yes (Other)
  Sender: FDA-Public Use
  Company Number: JP-AMGEN-JPNNI2019106946

PATIENT
  Age: 13 Year
  Sex: Male
  Weight: 45 kg

DRUGS (9)
  1. DECADRON [Suspect]
     Active Substance: DEXAMETHASONE
     Indication: CYTOKINE RELEASE SYNDROME
  2. BLINATUMOMAB [Suspect]
     Active Substance: BLINATUMOMAB
     Dosage: UNK
     Route: 041
     Dates: start: 20190722
  3. BLINATUMOMAB [Suspect]
     Active Substance: BLINATUMOMAB
     Dosage: 9 MICROGRAM/SQ. METER, QD
     Route: 042
  4. FUNGUARD [Concomitant]
     Active Substance: MICAFUNGIN SODIUM
  5. DECADRON [Suspect]
     Active Substance: DEXAMETHASONE
     Indication: PROPHYLAXIS
  6. STRONGER NEO-MINOPHAGEN C [CYSTEINE HYDROCHLORIDE;GLYCINE;GLYCYRRHIZIC [Concomitant]
     Indication: ALANINE AMINOTRANSFERASE INCREASED
     Dosage: UNK
  7. BLINATUMOMAB [Suspect]
     Active Substance: BLINATUMOMAB
     Indication: ACUTE LYMPHOCYTIC LEUKAEMIA RECURRENT
     Dosage: 5 MICROGRAM/SQ. METER, QD
     Route: 041
     Dates: start: 20190701, end: 20190708
  8. BLINATUMOMAB [Suspect]
     Active Substance: BLINATUMOMAB
     Dosage: UNK
     Route: 041
     Dates: start: 20190917
  9. DECADRON [Suspect]
     Active Substance: DEXAMETHASONE
     Indication: PYREXIA
     Dosage: UNK
     Route: 065
     Dates: end: 20190704

REACTIONS (10)
  - Hepatic function abnormal [Unknown]
  - Weight increased [Unknown]
  - Cytokine release syndrome [Recovered/Resolved]
  - Alanine aminotransferase increased [Recovering/Resolving]
  - Pulmonary function test abnormal [Unknown]
  - Systemic candida [Unknown]
  - Alanine aminotransferase increased [Recovering/Resolving]
  - Cytomegalovirus infection [Unknown]
  - Device related infection [Recovered/Resolved]
  - Pyrexia [Recovering/Resolving]

NARRATIVE: CASE EVENT DATE: 20190701
